FAERS Safety Report 7349966-0 (Version None)
Quarter: 2011Q1

REPORT INFORMATION
  Report Type: 
  Country: None (occurrence: None)
  Receive Date: 20110302
  Receipt Date: 20110217
  Transmission Date: 20110831
  Serious: Yes (Hospitalization)
  Sender: FDA-Public Use
  Company Number: 2011AT000067

PATIENT
  Age: 50 Year
  Sex: Female

DRUGS (5)
  1. UNIPHYL [Concomitant]
  2. THEO-24 [Suspect]
     Indication: ASTHMA
     Dosage: 400 MG, QD, PO
     Route: 048
     Dates: start: 20110201
  3. SPIRIVA [Concomitant]
  4. ADVAIR DISKUS 100/50 [Concomitant]
  5. ALBUTEROL [Concomitant]

REACTIONS (3)
  - ASTHMA [None]
  - CONDITION AGGRAVATED [None]
  - COUGH [None]
